FAERS Safety Report 13510159 (Version 3)
Quarter: 2020Q3

REPORT INFORMATION
  Report Type: Report from Study
  Country: BE (occurrence: BE)
  Receive Date: 20170503
  Receipt Date: 20170616
  Transmission Date: 20201104
  Serious: Yes (Death, Hospitalization, Other)
  Sender: FDA-Public Use
  Company Number: BE-ASTRAZENECA-2017SE35228

PATIENT
  Age: 66 Year
  Sex: Male
  Weight: 58 kg

DRUGS (11)
  1. MEDI4736 [Suspect]
     Active Substance: DURVALUMAB
     Indication: SQUAMOUS CELL CARCINOMA OF HEAD AND NECK
     Route: 042
     Dates: start: 20170328, end: 20170328
  2. DUROGESIC [Concomitant]
     Active Substance: FENTANYL
     Dates: start: 2016
  3. OXYNORM [Concomitant]
     Active Substance: OXYCODONE HYDROCHLORIDE
     Dates: start: 2016
  4. DAFALGAN [Concomitant]
     Active Substance: ACETAMINOPHEN
     Dates: start: 2016, end: 20170403
  5. KREDEX [Concomitant]
     Active Substance: CARVEDILOL
  6. FRAXIPARIN [Concomitant]
     Active Substance: NADROPARIN CALCIUM
     Dates: start: 201612
  7. LACTULOSE. [Concomitant]
     Active Substance: LACTULOSE
     Dates: start: 2016, end: 201704
  8. PANTOMED (PANTOPRAZOLE SODIUM) [Concomitant]
     Active Substance: PANTOPRAZOLE SODIUM
     Dates: start: 20160912
  9. TREMELIMUMAB. [Suspect]
     Active Substance: TREMELIMUMAB
     Indication: SQUAMOUS CELL CARCINOMA OF HEAD AND NECK
     Route: 042
     Dates: start: 20170328, end: 20170328
  10. SIPRALEXA [Concomitant]
     Active Substance: ESCITALOPRAM OXALATE
     Dates: start: 2016
  11. MAGNESIUM [Concomitant]
     Active Substance: MAGNESIUM
     Dates: start: 20170301, end: 20170327

REACTIONS (2)
  - Inflammation [Recovered/Resolved]
  - Tumour haemorrhage [Recovered/Resolved]

NARRATIVE: CASE EVENT DATE: 20170403
